FAERS Safety Report 12113754 (Version 1)
Quarter: 2016Q1

REPORT INFORMATION
  Report Type: Spontaneous
  Country: US (occurrence: US)
  Receive Date: 20160225
  Receipt Date: 20160225
  Transmission Date: 20160526
  Serious: Yes (Hospitalization)
  Sender: FDA-Public Use
  Company Number: US-BEH-2016059033

PATIENT
  Age: 23 Year
  Sex: Female
  Weight: 54 kg

DRUGS (22)
  1. HIZENTRA [Suspect]
     Active Substance: HUMAN IMMUNOGLOBULIN G
     Indication: HYPOGAMMAGLOBULINAEMIA
     Route: 058
  2. ACETAMINOPHEN. [Concomitant]
     Active Substance: ACETAMINOPHEN
  3. EPIPEN [Concomitant]
     Active Substance: EPINEPHRINE
  4. CLONIDINE. [Concomitant]
     Active Substance: CLONIDINE
  5. ATIVAN [Concomitant]
     Active Substance: LORAZEPAM
  6. PREDNISONE. [Concomitant]
     Active Substance: PREDNISONE
  7. OXYCODONE [Concomitant]
     Active Substance: OXYCODONE
  8. ZYRTEC [Concomitant]
     Active Substance: CETIRIZINE HYDROCHLORIDE
  9. LMX [Concomitant]
     Active Substance: LIDOCAINE
  10. LOPRESSOR [Concomitant]
     Active Substance: METOPROLOL TARTRATE
  11. FOLIC ACID. [Concomitant]
     Active Substance: FOLIC ACID
  12. RENAVITE [Concomitant]
     Active Substance: ASCORBIC ACID\BIOTIN\CALCIUM PANTOTHENATE\CYANOCOBALAMIN\FOLIC ACID\NIACINAMIDE\PYRIDOXINE HYDROCHLORIDE\RIBOFLAVIN\THIAMINE MONONITRATE
  13. PROTONIX [Concomitant]
     Active Substance: PANTOPRAZOLE SODIUM
  14. ZOFRAN [Concomitant]
     Active Substance: ONDANSETRON HYDROCHLORIDE
  15. MIRALAX [Concomitant]
     Active Substance: POLYETHYLENE GLYCOL 3350
  16. DILAUDID [Concomitant]
     Active Substance: HYDROMORPHONE HYDROCHLORIDE
  17. ALBUTEROL. [Concomitant]
     Active Substance: ALBUTEROL
  18. ASPIRIN. [Concomitant]
     Active Substance: ASPIRIN
  19. COLACE [Concomitant]
     Active Substance: DOCUSATE SODIUM
  20. VITAMIN B [Concomitant]
     Active Substance: VITAMIN B
  21. FERROUS SULFATE [Concomitant]
     Active Substance: FERROUS SULFATE\FERROUS SULFATE, DRIED
  22. SALINE NASAL SPRAY [Concomitant]
     Active Substance: SODIUM CHLORIDE

REACTIONS (1)
  - Pneumonia [Unknown]

NARRATIVE: CASE EVENT DATE: 20160203
